FAERS Safety Report 4750083-4 (Version None)
Quarter: 2005Q3

REPORT INFORMATION
  Report Type: 
  Country: None (occurrence: None)
  Receive Date: 20050822
  Receipt Date: 20050801
  Transmission Date: 20060218
  Serious: Yes (Hospitalization)
  Sender: FDA-Public Use
  Company Number: 216973

PATIENT
  Age: 75 Year
  Sex: Female

DRUGS (7)
  1. AVASTIN [Suspect]
     Indication: COLORECTAL CANCER METASTATIC
     Dosage: 285 MG, Q2W, INTRAVENOUS
     Route: 042
     Dates: start: 20050629, end: 20050719
  2. IRINOTECAN HCL [Suspect]
     Indication: COLORECTAL CANCER METASTATIC
     Dosage: 280 MG, Q2W, INTRAVENOUS
     Route: 042
     Dates: start: 20050629, end: 20050719
  3. FLUOROURACIL [Suspect]
     Indication: COLORECTAL CANCER METASTATIC
     Dosage: 2450 Q2W, INTRAVENOUS
     Route: 042
     Dates: start: 20050629, end: 20050719
  4. LEUCOVORIN CALCIUM [Suspect]
     Indication: COLORECTAL CANCER METASTATIC
     Dosage: 600 MG, Q2W, INTRAVENOUS
     Route: 042
     Dates: start: 20050629, end: 20050719
  5. FLUOXETIN (FLUOXETINE HYDROCHLORIDE0 [Concomitant]
  6. ALPRAZOLAM [Concomitant]
  7. NYSTATIN [Concomitant]

REACTIONS (13)
  - ANAEMIA [None]
  - CONVULSION [None]
  - DIZZINESS [None]
  - GENERALISED OEDEMA [None]
  - HYPOTENSION [None]
  - INTESTINAL OBSTRUCTION [None]
  - LEUKOPENIA [None]
  - MULTI-ORGAN FAILURE [None]
  - NEUTROPENIA [None]
  - RENAL IMPAIRMENT [None]
  - RETROPERITONEAL CANCER [None]
  - SOMNOLENCE [None]
  - VOMITING [None]
